FAERS Safety Report 8470586-9 (Version None)
Quarter: 2012Q2

REPORT INFORMATION
  Report Type: 
  Country: None (occurrence: None)
  Receive Date: 20120627
  Receipt Date: 20120620
  Transmission Date: 20120825
  Serious: Yes (Hospitalization)
  Sender: FDA-Public Use
  Company Number: PHHO2012NO008904

PATIENT
  Sex: Male
  Weight: 102 kg

DRUGS (9)
  1. RAMIPRIL [Concomitant]
     Indication: CARDIAC FAILURE
     Dosage: 10 MG, UNK
  2. SIMESTATIN [Concomitant]
     Indication: PROPHYLAXIS
     Dosage: 40 MG, UNK
  3. METOPROLOL TARTRATE [Concomitant]
     Indication: CARDIAC FAILURE
     Dosage: 100 MG, UNK
  4. FUROSEMIDE [Concomitant]
     Indication: CARDIAC FAILURE
     Dosage: 60 MG, UNK
  5. BLINDED NO TREATMENT RECEIVED [Suspect]
     Indication: CARDIAC FAILURE
     Dosage: CODE NOT BROKEN
     Route: 048
     Dates: start: 20100929, end: 20101014
  6. WARFARIN SODIUM [Concomitant]
     Indication: PROPHYLAXIS
     Dosage: UNK
  7. ENALAPRIL MALEATE [Suspect]
     Indication: CARDIAC FAILURE
     Dosage: CODE NOT BROKEN
     Route: 048
     Dates: start: 20100929, end: 20101014
  8. ALLOPUR [Concomitant]
     Indication: PROPHYLAXIS
     Dosage: 200 M, UNK
  9. BLINDED ALISKIREN [Suspect]
     Indication: CARDIAC FAILURE
     Dosage: CODE NOT BROKEN
     Route: 048
     Dates: start: 20100929, end: 20101014

REACTIONS (1)
  - UROSEPSIS [None]
